FAERS Safety Report 23837255 (Version 1)
Quarter: 2024Q2

REPORT INFORMATION
  Report Type: Spontaneous
  Country: CA (occurrence: CA)
  Receive Date: 20240509
  Receipt Date: 20240509
  Transmission Date: 20240716
  Serious: Yes (Life-Threatening, Hospitalization, Other)
  Sender: FDA-Public Use
  Company Number: CA-TEVA-VS-3196243

PATIENT
  Age: 60 Year
  Sex: Male

DRUGS (10)
  1. CLOPIDOGREL BISULFATE [Suspect]
     Active Substance: CLOPIDOGREL BISULFATE
     Indication: Antiplatelet therapy
     Route: 065
  2. CLOPIDOGREL BISULFATE [Suspect]
     Active Substance: CLOPIDOGREL BISULFATE
     Indication: Antiplatelet therapy
     Route: 065
  3. ASPIRIN [Suspect]
     Active Substance: ASPIRIN
     Indication: Antiplatelet therapy
     Route: 065
  4. ASPIRIN [Interacting]
     Active Substance: ASPIRIN
     Indication: Antiplatelet therapy
     Dosage: DOSE FORM: TABLET (ENTERIC- COATED)
     Route: 065
  5. AMPICILLIN [Concomitant]
     Active Substance: AMPICILLIN
     Indication: Sepsis
     Route: 065
  6. CEFAZOLIN [Concomitant]
     Active Substance: CEFAZOLIN
     Indication: Sepsis
     Dosage: THERAPY DURATION: 0.0
     Route: 065
  7. CEFAZOLIN [Concomitant]
     Active Substance: CEFAZOLIN
     Indication: Sepsis
     Dosage: THERAPY DURATION: 0.0
     Route: 065
  8. IMMUNOGLOBULINS [Concomitant]
     Indication: Platelet count decreased
     Route: 042
  9. PREDNISONE [Concomitant]
     Active Substance: PREDNISONE
     Indication: Platelet count decreased
     Route: 065
  10. VANCOMYCIN [Concomitant]
     Active Substance: VANCOMYCIN
     Indication: Sepsis
     Dosage: THERAPY DURATION: 0.0
     Route: 065

REACTIONS (4)
  - Gastrointestinal haemorrhage [Unknown]
  - Blood loss anaemia [Unknown]
  - Labelled drug-drug interaction medication error [Unknown]
  - Anaemia [Recovered/Resolved]
